FAERS Safety Report 7246061-6 (Version None)
Quarter: 2011Q1

REPORT INFORMATION
  Report Type: 
  Country: None (occurrence: None)
  Receive Date: 20110126
  Receipt Date: 20110126
  Transmission Date: 20110831
  Serious: Yes (Hospitalization, Other)
  Sender: FDA-Public Use
  Company Number: CA-ABBOTT-09P-028-0613007-00

PATIENT
  Sex: Female
  Weight: 83.99 kg

DRUGS (14)
  1. PROGESTERONE [Concomitant]
     Indication: PRODUCT USED FOR UNKNOWN INDICATION
  2. MORPHINE [Concomitant]
     Indication: PRODUCT USED FOR UNKNOWN INDICATION
     Dosage: 5-10 MG PRN
  3. HUMIRA [Suspect]
     Indication: CHOROIDITIS
     Route: 058
     Dates: start: 20060609
  4. ZOFRAN [Concomitant]
     Indication: MIGRAINE
  5. ZOFRAN [Concomitant]
     Indication: CRANIAL NERVE DISORDER
  6. GABAPENTIN [Concomitant]
     Indication: PRODUCT USED FOR UNKNOWN INDICATION
  7. CLONAZEPAM [Concomitant]
     Indication: PRODUCT USED FOR UNKNOWN INDICATION
  8. NORTRIPTYLINE [Concomitant]
     Indication: PRODUCT USED FOR UNKNOWN INDICATION
     Dosage: 30-40 MG QD
  9. CALCIUM [Concomitant]
     Indication: PRODUCT USED FOR UNKNOWN INDICATION
  10. ZOFRAN [Concomitant]
     Indication: NAUSEA
     Dosage: PRN
  11. ESTRACE [Concomitant]
     Indication: PRODUCT USED FOR UNKNOWN INDICATION
  12. PREDNISONE [Concomitant]
     Indication: PRODUCT USED FOR UNKNOWN INDICATION
  13. DEXEDRINE [Concomitant]
     Indication: PRODUCT USED FOR UNKNOWN INDICATION
  14. SYNTHROID [Suspect]
     Indication: PRODUCT USED FOR UNKNOWN INDICATION

REACTIONS (17)
  - MUSCULAR WEAKNESS [None]
  - EYE INFLAMMATION [None]
  - BLOOD POTASSIUM DECREASED [None]
  - DIARRHOEA [None]
  - DECREASED APPETITE [None]
  - ARTHRALGIA [None]
  - BACK PAIN [None]
  - PAIN IN EXTREMITY [None]
  - DRUG DETOXIFICATION [None]
  - HYPOACUSIS [None]
  - BLOOD MAGNESIUM DECREASED [None]
  - HYPERTHYROIDISM [None]
  - WEIGHT INCREASED [None]
  - STRESS FRACTURE [None]
  - VOMITING [None]
  - MIGRAINE [None]
  - INTERVERTEBRAL DISC PROTRUSION [None]
